FAERS Safety Report 13422395 (Version 1)
Quarter: 2017Q2

REPORT INFORMATION
  Report Type: Spontaneous
  Country: US (occurrence: US)
  Receive Date: 20170408
  Receipt Date: 20170408
  Transmission Date: 20170830
  Serious: Yes (Hospitalization)
  Sender: FDA-Public Use
  Company Number: None

PATIENT
  Age: 37 Year
  Sex: Female
  Weight: 61.2 kg

DRUGS (12)
  1. MELOXICAM. [Concomitant]
     Active Substance: MELOXICAM
  2. SMZ/TMP [Concomitant]
     Active Substance: SULFAMETHOXAZOLE\TRIMETHOPRIM
  3. TRAM ADOLESCENT [Concomitant]
  4. CYMBALTA [Concomitant]
     Active Substance: DULOXETINE HYDROCHLORIDE
  5. REMICADE [Concomitant]
     Active Substance: INFLIXIMAB
  6. REMICADE [Suspect]
     Active Substance: INFLIXIMAB
     Indication: ANKYLOSING SPONDYLITIS
     Dosage: OTHER FREQUENCY:EVERY 5 WEEKS;?
     Route: 042
  7. NORCO [Concomitant]
     Active Substance: ACETAMINOPHEN\HYDROCODONE BITARTRATE
  8. TYLENOL ARTHRITIS PAIN [Concomitant]
     Active Substance: ACETAMINOPHEN
  9. ALPRAZOLAM. [Concomitant]
     Active Substance: ALPRAZOLAM
  10. METAXALONE. [Concomitant]
     Active Substance: METAXALONE
  11. KEFLEX [Concomitant]
     Active Substance: CEPHALEXIN
  12. RIFAMPIN. [Concomitant]
     Active Substance: RIFAMPIN

REACTIONS (5)
  - Lymphadenopathy [None]
  - Pain [None]
  - Chills [None]
  - Staphylococcal sepsis [None]
  - Pyrexia [None]

NARRATIVE: CASE EVENT DATE: 20170403
